FAERS Safety Report 9613501 (Version 2)
Quarter: 2013Q4

REPORT INFORMATION
  Report Type: Spontaneous
  Country: US (occurrence: US)
  Receive Date: 20131010
  Receipt Date: 20131010
  Transmission Date: 20140711
  Serious: Yes (Other)
  Sender: FDA-Public Use
  Company Number: CHPA2013US015040

PATIENT
  Age: 63 Year
  Sex: Female

DRUGS (1)
  1. BENEFIBER W/ WHEAT DEXTRIN [Suspect]
     Dosage: 2 TSP, BID
     Route: 048
     Dates: start: 201309

REACTIONS (5)
  - Asthma [Recovering/Resolving]
  - Swelling [Unknown]
  - Constipation [Recovering/Resolving]
  - Pain [Unknown]
  - Faeces hard [Unknown]
